FAERS Safety Report 24531451 (Version 1)
Quarter: 2024Q4

REPORT INFORMATION
  Report Type: Spontaneous
  Country: PL (occurrence: PL)
  Receive Date: 20241022
  Receipt Date: 20241022
  Transmission Date: 20250115
  Serious: Yes (Hospitalization)
  Sender: SANDOZ
  Company Number: PL-USP-ICSR-2024-02-42-86-102-44-112-08-09-34-48-49-79-93-107-128-129-97-136_96

PATIENT
  Age: 26 Year
  Sex: Female

DRUGS (15)
  1. ALPRAZOLAM [Suspect]
     Active Substance: ALPRAZOLAM
     Indication: Persistent genital arousal disorder
     Dosage: UNK
     Route: 065
  2. AMOXICILLIN\CLAVULANIC ACID [Suspect]
     Active Substance: AMOXICILLIN\CLAVULANIC ACID
     Indication: Persistent genital arousal disorder
     Dosage: UNK
     Route: 065
  3. HERBALS\WITHANIA SOMNIFERA ROOT [Suspect]
     Active Substance: HERBALS\WITHANIA SOMNIFERA ROOT
     Indication: Persistent genital arousal disorder
     Dosage: UNK
     Route: 065
  4. ACETAMINOPHEN\CODEINE PHOSPHATE [Suspect]
     Active Substance: ACETAMINOPHEN\CODEINE PHOSPHATE
     Indication: Persistent genital arousal disorder
     Dosage: UNK
     Route: 065
  5. CETIRIZINE [Suspect]
     Active Substance: CETIRIZINE HYDROCHLORIDE
     Indication: Persistent genital arousal disorder
     Dosage: UNK
     Route: 065
  6. CIPROFLOXACIN [Suspect]
     Active Substance: CIPROFLOXACIN
     Indication: Persistent genital arousal disorder
     Dosage: UNK
     Route: 065
  7. CLOTRIMAZOLE [Suspect]
     Active Substance: CLOTRIMAZOLE
     Indication: Persistent genital arousal disorder
     Dosage: ROUTE OF ADMIN (FREE TEXT): VAGINALLY
     Route: 065
  8. FLUCONAZOLE [Suspect]
     Active Substance: FLUCONAZOLE
     Indication: Persistent genital arousal disorder
     Dosage: UNK
     Route: 065
  9. FURAZIDINE [Suspect]
     Active Substance: FURAZIDINE
     Indication: Persistent genital arousal disorder
     Dosage: UNK
     Route: 065
  10. GENTAMICIN [Suspect]
     Active Substance: GENTAMICIN
     Indication: Persistent genital arousal disorder
     Dosage: UNK
     Route: 065
  11. HYDROXYZINE [Suspect]
     Active Substance: HYDROXYZINE HYDROCHLORIDE
     Indication: Persistent genital arousal disorder
     Dosage: UNK
     Route: 065
  12. IBUPROFEN [Suspect]
     Active Substance: IBUPROFEN
     Indication: Persistent genital arousal disorder
     Dosage: UNK
     Route: 065
  13. ACETAMINOPHEN [Suspect]
     Active Substance: ACETAMINOPHEN
     Indication: Persistent genital arousal disorder
     Dosage: UNK
     Route: 065
  14. NATAMYCIN [Suspect]
     Active Substance: NATAMYCIN
     Indication: Persistent genital arousal disorder
     Dosage: UNK
     Route: 065
  15. TIANEPTINE [Suspect]
     Active Substance: TIANEPTINE
     Indication: Persistent genital arousal disorder
     Dosage: UNK
     Route: 065

REACTIONS (1)
  - Condition aggravated [Recovered/Resolved]
